FAERS Safety Report 8139425-X (Version None)
Quarter: 2012Q1

REPORT INFORMATION
  Report Type: 
  Country: None (occurrence: None)
  Receive Date: 20120215
  Receipt Date: 20120207
  Transmission Date: 20120608
  Serious: Yes (Other)
  Sender: FDA-Public Use
  Company Number: US-ROCHE-792823

PATIENT
  Sex: Female
  Weight: 59.02 kg

DRUGS (1)
  1. ACCUTANE [Suspect]
     Indication: ACNE
     Route: 065
     Dates: start: 19970101, end: 20011231

REACTIONS (13)
  - LIVER DISORDER [None]
  - ARTHRITIS [None]
  - DEPRESSION [None]
  - INFLAMMATORY BOWEL DISEASE [None]
  - PEPTIC ULCER [None]
  - THYROID DISORDER [None]
  - DRY EYE [None]
  - CROHN'S DISEASE [None]
  - COELIAC DISEASE [None]
  - PANIC ATTACK [None]
  - COLITIS ULCERATIVE [None]
  - CYSTITIS INTERSTITIAL [None]
  - IRRITABLE BOWEL SYNDROME [None]
